FAERS Safety Report 7275758-7 (Version None)
Quarter: 2011Q1

REPORT INFORMATION
  Report Type: 
  Country: None (occurrence: None)
  Receive Date: 20110204
  Receipt Date: 20110131
  Transmission Date: 20110831
  Serious: Yes (Death)
  Sender: FDA-Public Use
  Company Number: GB-MERCK-1102GBR00006

PATIENT

DRUGS (1)
  1. ISENTRESS [Suspect]
     Indication: HIV INFECTION
     Route: 048

REACTIONS (2)
  - MULTI-ORGAN FAILURE [None]
  - ARTHRITIS BACTERIAL [None]
